FAERS Safety Report 21974253 (Version 8)
Quarter: 2023Q2

REPORT INFORMATION
  Report Type: Report from Study
  Country: US (occurrence: US)
  Receive Date: 20230209
  Receipt Date: 20230608
  Transmission Date: 20230722
  Serious: No
  Sender: FDA-Public Use
  Company Number: US-002147023-NVSC2023US025833

PATIENT
  Sex: Female

DRUGS (1)
  1. KESIMPTA [Suspect]
     Active Substance: OFATUMUMAB
     Indication: Product used for unknown indication
     Dosage: UNK
     Route: 065

REACTIONS (6)
  - Ill-defined disorder [Unknown]
  - Oropharyngeal discomfort [Unknown]
  - Injection site extravasation [Unknown]
  - Dysphagia [Unknown]
  - Vomiting [Unknown]
  - Feeling abnormal [Unknown]
